FAERS Safety Report 9887273 (Version 4)
Quarter: 2014Q1

REPORT INFORMATION
  Report Type: Spontaneous
  Country: US (occurrence: US)
  Receive Date: 20140211
  Receipt Date: 20140319
  Transmission Date: 20141002
  Serious: No
  Sender: FDA-Public Use
  Company Number: US-009507513-1401USA013285

PATIENT
  Age: 58 Year
  Sex: Female
  Weight: 72.56 kg

DRUGS (3)
  1. PEGINTRON [Suspect]
     Indication: HEPATITIS C
     Dosage: 0.5 ML, Q7DAYS, 120 MICROGRAMS, REDIPEN
     Route: 058
     Dates: start: 20140103, end: 20140201
  2. REBETOL [Suspect]
     Indication: HEPATITIS C
     Dosage: 600MG AM /400MG PM
     Route: 048
     Dates: start: 20140103, end: 20140201
  3. VICTRELIS [Suspect]
     Dosage: UNK
     Route: 048

REACTIONS (3)
  - Fatigue [Not Recovered/Not Resolved]
  - Anaemia [Not Recovered/Not Resolved]
  - Dry skin [Unknown]
